FAERS Safety Report 13634043 (Version 1)
Quarter: 2017Q2

REPORT INFORMATION
  Report Type: Spontaneous
  Country: US (occurrence: US)
  Receive Date: 20170531
  Receipt Date: 20170531
  Transmission Date: 20170830
  Serious: No
  Sender: FDA-Public Use
  Company Number: US-ASTELLAS-1598995

PATIENT
  Sex: Male

DRUGS (2)
  1. TARCEVA [Suspect]
     Active Substance: ERLOTINIB HYDROCHLORIDE
     Indication: LUNG NEOPLASM MALIGNANT
     Route: 048
  2. DOXYCYCLINE. [Concomitant]
     Active Substance: DOXYCYCLINE

REACTIONS (7)
  - Nail growth abnormal [Unknown]
  - Prostate infection [Unknown]
  - Trichiasis [Unknown]
  - Growth of eyelashes [Unknown]
  - Rash [Not Recovered/Not Resolved]
  - Cataract operation [Unknown]
  - Pruritus [Unknown]
